FAERS Safety Report 5263981-2 (Version None)
Quarter: 2007Q1

REPORT INFORMATION
  Report Type: 
  Country: None (occurrence: None)
  Receive Date: 20070313
  Receipt Date: 20070301
  Transmission Date: 20070707
  Serious: Yes (Hospitalization)
  Sender: FDA-Public Use
  Company Number: HQWYE342101MAR07

PATIENT
  Age: 79 Year
  Sex: Female

DRUGS (7)
  1. INIPOMP [Suspect]
     Dosage: ^MG^
     Route: 048
     Dates: start: 20070103, end: 20070111
  2. GENTAMICIN [Suspect]
     Indication: STAPHYLOCOCCAL SEPSIS
     Dosage: ^DF^
     Route: 042
     Dates: start: 20070103, end: 20070104
  3. AXEPIM [Suspect]
     Indication: STAPHYLOCOCCAL SEPSIS
     Dosage: ^DF^
     Route: 042
     Dates: start: 20070103, end: 20070105
  4. VANCOMYCIN HYDROCHLORIDE [Suspect]
     Indication: STAPHYLOCOCCAL SEPSIS
     Dosage: ^DF^
     Route: 042
     Dates: start: 20070103, end: 20070108
  5. VANCOMYCIN HYDROCHLORIDE [Suspect]
     Dosage: ^DF^
     Route: 042
     Dates: start: 20070115
  6. CLAFORAN [Suspect]
     Indication: STAPHYLOCOCCAL SEPSIS
     Dosage: ^DF^
     Route: 042
     Dates: start: 20070105
  7. OMNIPAQUE ^SANOFI WINTHROP^ [Suspect]
     Indication: ABDOMEN SCAN
     Route: 013
     Dates: start: 20070103, end: 20070103

REACTIONS (1)
  - RENAL FAILURE ACUTE [None]
